FAERS Safety Report 22522193 (Version 2)
Quarter: 2023Q2

REPORT INFORMATION
  Report Type: Spontaneous
  Country: US (occurrence: US)
  Receive Date: 20230605
  Receipt Date: 20230607
  Transmission Date: 20230722
  Serious: No
  Sender: FDA-Public Use
  Company Number: US-002147023-NVSC2023US123613

PATIENT
  Sex: Female

DRUGS (1)
  1. ESTRADIOL [Suspect]
     Active Substance: ESTRADIOL
     Indication: Product used for unknown indication
     Dosage: UNK
     Route: 065
     Dates: start: 202301

REACTIONS (5)
  - Hot flush [Unknown]
  - Headache [Unknown]
  - Product quality issue [Unknown]
  - Product adhesion issue [Unknown]
  - Incorrect dose administered by device [Unknown]
